FAERS Safety Report 4996764-9 (Version None)
Quarter: 2006Q2

REPORT INFORMATION
  Report Type: 
  Country: None (occurrence: None)
  Receive Date: 20060509
  Receipt Date: 20060428
  Transmission Date: 20061013
  Serious: Yes (Other)
  Sender: FDA-Public Use
  Company Number: US-JNJFOC-20060500699

PATIENT
  Age: 4 Decade
  Sex: Male

DRUGS (2)
  1. RISPERDAL [Suspect]
     Route: 048
  2. RISPERDAL [Suspect]
     Indication: SCHIZOPHRENIA
     Route: 048

REACTIONS (2)
  - HEPATIC STEATOSIS [None]
  - HEPATOSPLENOMEGALY [None]
